FAERS Safety Report 4636885-3 (Version None)
Quarter: 2005Q2

REPORT INFORMATION
  Report Type: 
  Country: None (occurrence: None)
  Receive Date: 20050415
  Receipt Date: 20050406
  Transmission Date: 20051028
  Serious: Yes (Hospitalization)
  Sender: FDA-Public Use
  Company Number: JP-MERCK-0504USA01329

PATIENT
  Age: 70 Year
  Sex: Female

DRUGS (4)
  1. FOSAMAX [Suspect]
     Route: 048
     Dates: start: 20050310, end: 20050320
  2. NONSTEROIDAL ANTI-INFLAMMATORY DRUG (UNSPECIFIED) [Concomitant]
     Route: 065
     Dates: end: 20050320
  3. GASTROINTESTINAL PREPARATIONS (UNSPECIFIED) [Concomitant]
     Route: 065
     Dates: end: 20050320
  4. [THERAPY UNSPECIFIED] [Concomitant]
     Route: 065
     Dates: end: 20050320

REACTIONS (5)
  - EOSINOPHIL COUNT INCREASED [None]
  - FEELING ABNORMAL [None]
  - LIVER DISORDER [None]
  - NAUSEA [None]
  - TRANSAMINASES ABNORMAL [None]
